FAERS Safety Report 23731360 (Version 1)
Quarter: 2024Q2

REPORT INFORMATION
  Report Type: Spontaneous
  Country: FR (occurrence: FR)
  Receive Date: 20240411
  Receipt Date: 20240411
  Transmission Date: 20240716
  Serious: Yes (Other)
  Sender: FDA-Public Use
  Company Number: None

PATIENT
  Age: 47 Year
  Sex: Male

DRUGS (4)
  1. ACETAMINOPHEN [Suspect]
     Active Substance: ACETAMINOPHEN
     Indication: Product used for unknown indication
     Dosage: BETWEEN 60 AND 160GM OF CODEINE/D
     Route: 048
     Dates: start: 202308
  2. CANNABIS SATIVA SUBSP. INDICA TOP [Suspect]
     Active Substance: CANNABIS SATIVA SUBSP. INDICA TOP
     Indication: Product used for unknown indication
     Dosage: 3 TO 4 JOINTS/D
     Route: 055
     Dates: start: 1989
  3. CODEINE [Suspect]
     Active Substance: CODEINE
     Indication: Product used for unknown indication
     Dosage: BETWEEN 60 AND 160GM OF CODEINE/D
     Route: 048
     Dates: start: 202308
  4. DEXPANTHENOL\DOMIPHEN BROMIDE\METHYL SALICYLATE\UREA [Suspect]
     Active Substance: DEXPANTHENOL\DOMIPHEN BROMIDE\METHYL SALICYLATE\UREA
     Indication: Product used for unknown indication
     Dosage: 1.5 GRAM, QW (1.5 G/WEEK FOR MANY YEARS)
     Route: 055

REACTIONS (2)
  - Drug dependence [Not Recovered/Not Resolved]
  - Product use in unapproved indication [Not Recovered/Not Resolved]
